FAERS Safety Report 7832533-X (Version None)
Quarter: 2011Q4

REPORT INFORMATION
  Report Type: 
  Country: None (occurrence: None)
  Receive Date: 20111024
  Receipt Date: 20111013
  Transmission Date: 20120403
  Serious: Yes (Hospitalization)
  Sender: FDA-Public Use
  Company Number: US-BIOGENIDEC-2011BI036179

PATIENT
  Age: 49 Year
  Sex: Female

DRUGS (2)
  1. TYSABRI [Suspect]
     Indication: MULTIPLE SCLEROSIS
     Route: 042
     Dates: start: 20110301, end: 20110913
  2. TYSABRI [Suspect]
     Route: 042
     Dates: start: 20070201, end: 20101201

REACTIONS (3)
  - PAIN IN EXTREMITY [None]
  - DEHYDRATION [None]
  - HYPOTENSION [None]
